FAERS Safety Report 11135902 (Version 1)
Quarter: 2015Q2

REPORT INFORMATION
  Report Type: Spontaneous
  Country: CA (occurrence: CA)
  Receive Date: 20150526
  Receipt Date: 20150526
  Transmission Date: 20150821
  Serious: Yes (Other)
  Sender: FDA-Public Use
  Company Number: CA-PFIZER INC-2015171621

PATIENT
  Sex: Male

DRUGS (1)
  1. TOVIAZ [Suspect]
     Active Substance: FESOTERODINE FUMARATE
     Indication: BLADDER SPASM
     Dosage: 4 MG, UNK
     Dates: start: 201505, end: 20150512

REACTIONS (3)
  - Wrong technique in drug usage process [Unknown]
  - Blood urine present [Unknown]
  - Back pain [Unknown]

NARRATIVE: CASE EVENT DATE: 201505
